FAERS Safety Report 7085860-0 (Version None)
Quarter: 2010Q4

REPORT INFORMATION
  Report Type: 
  Country: None (occurrence: None)
  Receive Date: 20101105
  Receipt Date: 20101028
  Transmission Date: 20110411
  Serious: Yes (Hospitalization, Other)
  Sender: FDA-Public Use
  Company Number: US-CELGENEUS-163-21880-10092834

PATIENT
  Age: 63 Year
  Sex: Male

DRUGS (11)
  1. REVLIMID [Suspect]
     Route: 048
     Dates: start: 20100916
  2. REVLIMID [Suspect]
     Route: 048
     Dates: start: 20100928, end: 20101006
  3. CYTARABINE [Suspect]
     Dosage: 1.5G/M2
     Route: 051
     Dates: start: 20100920, end: 20100923
  4. IDARUBICIN HCL [Suspect]
     Route: 051
     Dates: start: 20100920, end: 20100922
  5. CEFEPIME [Suspect]
     Indication: PROPHYLAXIS
     Route: 065
     Dates: end: 20101016
  6. FLAGYL [Suspect]
     Indication: CLOSTRIDIUM DIFFICILE COLITIS
     Route: 065
     Dates: start: 20101012, end: 20101018
  7. VANCOMYCIN [Suspect]
     Route: 065
     Dates: start: 20101015
  8. VANCOMYCIN [Suspect]
     Route: 048
     Dates: start: 20101016
  9. FLUCONAZOLE [Concomitant]
     Indication: PROPHYLAXIS
     Route: 065
  10. VALTREX [Concomitant]
     Indication: PROPHYLAXIS
     Route: 065
  11. ZOSYN [Concomitant]
     Indication: PROPHYLAXIS
     Route: 065
     Dates: start: 20101018

REACTIONS (4)
  - CLOSTRIDIUM DIFFICILE COLITIS [None]
  - DERMATITIS BULLOUS [None]
  - LYMPHOCYTE COUNT DECREASED [None]
  - WHITE BLOOD CELL COUNT DECREASED [None]
